FAERS Safety Report 9213563 (Version 3)
Quarter: 2013Q4

REPORT INFORMATION
  Report Type: Report from Study
  Country: DE (occurrence: DE)
  Receive Date: 20130405
  Receipt Date: 20131024
  Transmission Date: 20140711
  Serious: Yes (Other)
  Sender: FDA-Public Use
  Company Number: DE-UCBSA-074490

PATIENT
  Sex: Male
  Weight: 82 kg

DRUGS (6)
  1. NEUPRO [Suspect]
     Indication: RESTLESS LEGS SYNDROME
     Route: 062
     Dates: start: 20120705
  2. NEUPRO [Suspect]
     Indication: RESTLESS LEGS SYNDROME
     Route: 062
     Dates: start: 20120302, end: 20120705
  3. TRAMAL [Concomitant]
     Indication: RESTLESS LEGS SYNDROME
     Route: 048
     Dates: start: 20070817
  4. RESTEX [Concomitant]
     Indication: RESTLESS LEGS SYNDROME
     Dosage: SINGLE DOSE: 100/25MG AND TOTAL DAILY DOSE: 600/150MG
     Route: 048
     Dates: start: 20070817, end: 20120309
  5. RESTEX [Concomitant]
     Indication: RESTLESS LEGS SYNDROME
     Dosage: SINGLE DOSE: 100/25 MG AND TOTAL DAILY DOSE: 100/ MG
     Route: 048
     Dates: start: 20120310, end: 20120629
  6. RESTEX [Concomitant]
     Indication: RESTLESS LEGS SYNDROME
     Dosage: SINGLE DOSE: 100/25 MG AND TOTAL DAILY DOSE: 200/50MG
     Route: 048
     Dates: start: 20120630

REACTIONS (6)
  - Depression [Not Recovered/Not Resolved]
  - Irritability [Not Recovered/Not Resolved]
  - Thinking abnormal [Not Recovered/Not Resolved]
  - Personality change [Not Recovered/Not Resolved]
  - Application site erythema [Not Recovered/Not Resolved]
  - Application site swelling [Not Recovered/Not Resolved]
